FAERS Safety Report 24911875 (Version 3)
Quarter: 2025Q1

REPORT INFORMATION
  Report Type: Spontaneous
  Country: BR (occurrence: BR)
  Receive Date: 20250131
  Receipt Date: 20250213
  Transmission Date: 20250409
  Serious: Yes (Other)
  Sender: ORGANON
  Company Number: BR-ORGANON-O2411BRA002491

PATIENT
  Age: 36 Year
  Sex: Female

DRUGS (2)
  1. ETONOGESTREL [Suspect]
     Active Substance: ETONOGESTREL
     Route: 059
     Dates: start: 20240911
  2. NUVARING [Suspect]
     Active Substance: ETHINYL ESTRADIOL\ETONOGESTREL
     Route: 067

REACTIONS (7)
  - Vaginal haemorrhage [Not Recovered/Not Resolved]
  - Discomfort [Unknown]
  - Premenstrual syndrome [Unknown]
  - Overdose [Unknown]
  - Device use issue [Unknown]
  - Product prescribing issue [Unknown]
  - Product use in unapproved indication [Unknown]
